FAERS Safety Report 9122401 (Version 2)
Quarter: 2013Q2

REPORT INFORMATION
  Report Type: Spontaneous
  Country: US (occurrence: None)
  Receive Date: 20120507
  Receipt Date: 20121106
  Transmission Date: 20140414
  Serious: Yes (Other)
  Sender: FDA-Public Use
  Company Number: 1000025944

PATIENT
  Age: 50 Year
  Sex: Female

DRUGS (16)
  1. DALIRESP [Suspect]
     Indication: CHRONIC OBSTRUCTIVE PULMONARY DISEASE
     Route: 048
     Dates: start: 20111118
  2. DALIRESP [Suspect]
     Indication: EMPHYSEMA
     Route: 048
     Dates: start: 20111118
  3. SYNTHROID [Concomitant]
  4. NEXIUM [Concomitant]
  5. SPIRIVA [Concomitant]
  6. ADVAIR [Concomitant]
  7. CELEXA [Concomitant]
  8. ESTRATEST [Concomitant]
  9. ABILIFY [Suspect]
  10. XOPENEX [Concomitant]
  11. SINGULAIR [Concomitant]
  12. AMBIEN [Concomitant]
  13. CHANTIX [Concomitant]
  14. PAXIL [Concomitant]
  15. CYMBALTA [Concomitant]
  16. TRAZODONE [Concomitant]

REACTIONS (6)
  - Back pain [None]
  - Influenza like illness [None]
  - Tremor [None]
  - Insomnia [None]
  - Pain [None]
  - Diarrhoea [None]
